FAERS Safety Report 5810948-9 (Version None)
Quarter: 2008Q3

REPORT INFORMATION
  Report Type: 
  Country: None (occurrence: None)
  Receive Date: 20080716
  Receipt Date: 20080707
  Transmission Date: 20090109
  Serious: Yes (Other)
  Sender: FDA-Public Use
  Company Number: PHHY2008IE13708

PATIENT
  Age: 34 Year
  Sex: Female

DRUGS (1)
  1. TEGRETOL [Suspect]
     Indication: ABNORMAL BEHAVIOUR
     Dosage: 400 MG, BID
     Dates: end: 20080625

REACTIONS (4)
  - APHASIA [None]
  - BALANCE DISORDER [None]
  - COORDINATION ABNORMAL [None]
  - HEPATIC ENZYME INCREASED [None]
